FAERS Safety Report 11123534 (Version 1)
Quarter: 2015Q2

REPORT INFORMATION
  Report Type: Report from Study
  Country: US (occurrence: US)
  Receive Date: 20150519
  Receipt Date: 20150519
  Transmission Date: 20150821
  Serious: Yes (Other)
  Sender: FDA-Public Use
  Company Number: PHHO2015US008970

PATIENT

DRUGS (1)
  1. FARYDAK [Suspect]
     Active Substance: PANOBINOSTAT
     Indication: HAEMATOLOGICAL MALIGNANCY
     Route: 048

REACTIONS (2)
  - Enterocolitis [Unknown]
  - Nausea [Unknown]
